FAERS Safety Report 14453514 (Version 1)
Quarter: 2018Q1

REPORT INFORMATION
  Report Type: Spontaneous
  Country: US (occurrence: US)
  Receive Date: 20180129
  Receipt Date: 20180129
  Transmission Date: 20180509
  Serious: Yes (Other)
  Sender: FDA-Public Use
  Company Number: US-PFIZER INC-2018034174

PATIENT

DRUGS (1)
  1. NOREPINEPHRINE BITARTRATE. [Suspect]
     Active Substance: NOREPINEPHRINE BITARTRATE
     Indication: BLOOD PRESSURE ABNORMAL
     Dosage: UNK
     Route: 042

REACTIONS (4)
  - Necrosis ischaemic [Recovering/Resolving]
  - Oedema peripheral [Recovering/Resolving]
  - Infusion site extravasation [Unknown]
  - Venous occlusion [Recovering/Resolving]
